FAERS Safety Report 10699354 (Version 4)
Quarter: 2015Q1

REPORT INFORMATION
  Report Type: Report from Study
  Country: JP (occurrence: JP)
  Receive Date: 20150109
  Receipt Date: 20150310
  Transmission Date: 20150721
  Serious: Yes (Death, Life-Threatening, Hospitalization, Disabling, Other)
  Sender: FDA-Public Use
  Company Number: JP-ROCHE-1435726

PATIENT
  Age: 83 Year
  Sex: Male
  Weight: 60 kg

DRUGS (11)
  1. METHOXY POLYETHYLENE GLYCOL-EPOETIN BETA [Suspect]
     Active Substance: PEGZEREPOETIN ALFA
     Indication: NEPHROGENIC ANAEMIA
     Route: 058
     Dates: start: 20120709, end: 20120709
  2. PANTOSIN [Concomitant]
     Active Substance: PANTETHINE
     Route: 048
     Dates: end: 20130411
  3. PLETAAL [Concomitant]
     Active Substance: CILOSTAZOL
     Route: 048
     Dates: end: 20130411
  4. METHOXY POLYETHYLENE GLYCOL-EPOETIN BETA [Suspect]
     Active Substance: PEGZEREPOETIN ALFA
     Indication: NEPHROGENIC ANAEMIA
     Route: 058
     Dates: start: 20130218, end: 20130518
  5. ZETIA [Concomitant]
     Active Substance: EZETIMIBE
     Route: 048
     Dates: end: 20120411
  6. MAGNESIUM OXIDE. [Concomitant]
     Active Substance: MAGNESIUM OXIDE
     Route: 048
     Dates: end: 20130411
  7. CRESTOR [Concomitant]
     Active Substance: ROSUVASTATIN CALCIUM
     Route: 048
     Dates: end: 20130411
  8. METHOXY POLYETHYLENE GLYCOL-EPOETIN BETA [Suspect]
     Active Substance: PEGZEREPOETIN ALFA
     Indication: NEPHROGENIC ANAEMIA
     Route: 058
     Dates: start: 20120903, end: 20130121
  9. DIOVAN [Concomitant]
     Active Substance: VALSARTAN
     Route: 048
     Dates: end: 20130411
  10. KREMEZIN [Concomitant]
     Active Substance: ACTIVATED CHARCOAL
     Indication: NEPHROSCLEROSIS
     Route: 048
     Dates: end: 20130411
  11. ARTIST [Concomitant]
     Active Substance: CARVEDILOL
     Route: 048
     Dates: end: 20130411

REACTIONS (11)
  - Azotaemia [Fatal]
  - Upper gastrointestinal haemorrhage [Recovered/Resolved]
  - Hemiplegia [Unknown]
  - Chronic kidney disease [Fatal]
  - Aphasia [Unknown]
  - Cardiac failure congestive [Recovering/Resolving]
  - Pneumonia aspiration [Not Recovered/Not Resolved]
  - Subdural haematoma [Not Recovered/Not Resolved]
  - Cardio-respiratory arrest [Recovered/Resolved with Sequelae]
  - Drug eruption [Recovering/Resolving]
  - Fall [Unknown]

NARRATIVE: CASE EVENT DATE: 20130411
